FAERS Safety Report 19360004 (Version 1)
Quarter: 2021Q2

REPORT INFORMATION
  Report Type: Spontaneous
  Country: US (occurrence: US)
  Receive Date: 20210602
  Receipt Date: 20210602
  Transmission Date: 20210717
  Serious: Yes (Death, Other)
  Sender: FDA-Public Use
  Company Number: US-SHILPA MEDICARE LIMITED-SML-US-2021-00702

PATIENT
  Age: 72 Year
  Sex: Female

DRUGS (1)
  1. ERLOTINIB UNKNOWN [Suspect]
     Active Substance: ERLOTINIB
     Indication: NON-SMALL CELL LUNG CANCER
     Route: 065

REACTIONS (8)
  - Asthenia [Unknown]
  - Muscular weakness [Unknown]
  - Cancer pain [Unknown]
  - Hip fracture [Unknown]
  - Non-small cell lung cancer [Fatal]
  - Cryptococcal fungaemia [Unknown]
  - Cognitive disorder [Unknown]
  - Cerebellar stroke [Unknown]
